FAERS Safety Report 24056008 (Version 1)
Quarter: 2024Q3

REPORT INFORMATION
  Report Type: Report from Study
  Country: US (occurrence: None)
  Receive Date: 20240705
  Receipt Date: 20240705
  Transmission Date: 20241016
  Serious: Yes (Hospitalization)
  Sender: ASTRAZENECA
  Company Number: 2024A153218

PATIENT
  Sex: Female

DRUGS (2)
  1. FASENRA [Suspect]
     Active Substance: BENRALIZUMAB
     Indication: Asthma
     Dosage: 30MG/ML EVERY FOUR WEEKS
     Route: 058
     Dates: start: 202406
  2. XANAX [Suspect]
     Active Substance: ALPRAZOLAM

REACTIONS (6)
  - Panic attack [Unknown]
  - Muscle spasms [Unknown]
  - Hallucination [Unknown]
  - Vision blurred [Unknown]
  - Trismus [Unknown]
  - Drug withdrawal syndrome [Unknown]
